FAERS Safety Report 5530354-4 (Version None)
Quarter: 2007Q4

REPORT INFORMATION
  Report Type: 
  Country: None (occurrence: None)
  Receive Date: 20071130
  Receipt Date: 20070419
  Transmission Date: 20080405
  Serious: No
  Sender: FDA-Public Use
  Company Number: A0648000A

PATIENT
  Age: 3 Year
  Sex: Female

DRUGS (2)
  1. AUGMENTIN '250' [Suspect]
     Indication: EAR INFECTION
     Dosage: 1TSP TWICE PER DAY
     Route: 048
     Dates: start: 20070316, end: 20070325
  2. SINGULAIR [Concomitant]

REACTIONS (1)
  - TOOTH DISCOLOURATION [None]
